FAERS Safety Report 9649273 (Version 1)
Quarter: 2013Q4

REPORT INFORMATION
  Report Type: Spontaneous
  Country: JP (occurrence: JP)
  Receive Date: 20131028
  Receipt Date: 20131028
  Transmission Date: 20140711
  Serious: Yes (Hospitalization)
  Sender: FDA-Public Use
  Company Number: JP-GLAXOSMITHKLINE-B0929264A

PATIENT
  Age: 76 Year
  Sex: Female

DRUGS (6)
  1. VALTREX [Suspect]
     Indication: HERPES ZOSTER
     Dosage: 1000MG THREE TIMES PER DAY
     Route: 048
     Dates: start: 20131002, end: 20131005
  2. ENSURE [Concomitant]
     Route: 048
     Dates: start: 20130925, end: 20131005
  3. GASTER [Concomitant]
     Dosage: 20MG TWICE PER DAY
     Route: 048
     Dates: start: 20130925, end: 20131005
  4. LOXONIN [Concomitant]
     Indication: HERPES ZOSTER
     Dosage: 60MG THREE TIMES PER DAY
     Route: 048
     Dates: start: 20131002, end: 20131005
  5. MUCOSTA [Concomitant]
     Indication: HERPES ZOSTER
     Dosage: 100MG THREE TIMES PER DAY
     Route: 048
     Dates: start: 20131002, end: 20131005
  6. THYRADIN S [Concomitant]
     Indication: HYPOTHYROIDISM
     Dosage: 25MCG PER DAY
     Route: 048

REACTIONS (3)
  - Renal failure acute [Recovered/Resolved]
  - Encephalopathy [Recovered/Resolved]
  - Loss of consciousness [Unknown]
